FAERS Safety Report 5830848-8 (Version None)
Quarter: 2008Q3

REPORT INFORMATION
  Report Type: 
  Country: None (occurrence: None)
  Receive Date: 20080801
  Receipt Date: 20071231
  Transmission Date: 20090109
  Serious: No
  Sender: FDA-Public Use
  Company Number: US-BRISTOL-MYERS SQUIBB COMPANY-14027825

PATIENT
  Age: 80 Year
  Sex: Female
  Weight: 71 kg

DRUGS (6)
  1. COUMADIN [Suspect]
     Indication: ATRIAL FIBRILLATION
     Dosage: 5MG ON MONDAYS, WEDNESDAYS AND FRIDAYS,1/2 OF 5MG FOR THE REMAINING DAYS.
     Route: 048
     Dates: start: 19870101
  2. LISINOPRIL [Concomitant]
  3. PRESERVISION AREDS [Concomitant]
  4. LANOXIN [Concomitant]
  5. COREG [Concomitant]
  6. METANX [Concomitant]

REACTIONS (1)
  - ALOPECIA [None]
